FAERS Safety Report 23295444 (Version 1)
Quarter: 2023Q4

REPORT INFORMATION
  Report Type: Spontaneous
  Country: US (occurrence: None)
  Receive Date: 20231213
  Receipt Date: 20231213
  Transmission Date: 20240109
  Serious: Yes (Hospitalization)
  Sender: FDA-Public Use
  Company Number: None

PATIENT
  Age: 68 Year
  Sex: Female

DRUGS (15)
  1. CAPECITABINE [Suspect]
     Active Substance: CAPECITABINE
     Indication: Colorectal cancer
     Dosage: FREQUENCY : TWICE A DAY;?
     Route: 048
     Dates: start: 20231107
  2. THC GUMMIES [Concomitant]
  3. VITAMIN K [Concomitant]
     Active Substance: PHYTONADIONE
  4. CALCIUM [Concomitant]
     Active Substance: CALCIUM
  5. VITAMIN D [Concomitant]
     Active Substance: VITAMIN D NOS
  6. IRON [Concomitant]
     Active Substance: IRON
  7. OXALIPLATIN [Concomitant]
     Active Substance: OXALIPLATIN
  8. VITAMIN B12 [Concomitant]
     Active Substance: CYANOCOBALAMIN
  9. XARELTO [Concomitant]
     Active Substance: RIVAROXABAN
  10. MECLIZINE [Concomitant]
     Active Substance: MECLIZINE HYDROCHLORIDE
  11. DOCUSATE [Concomitant]
     Active Substance: DOCUSATE
  12. PROCHLORPERAZINE [Concomitant]
     Active Substance: PROCHLORPERAZINE
  13. ONDANSETRON [Concomitant]
     Active Substance: ONDANSETRON
  14. DEXAMETHASONE [Concomitant]
     Active Substance: DEXAMETHASONE
  15. BUDESONIDE [Concomitant]
     Active Substance: BUDESONIDE

REACTIONS (3)
  - Proctalgia [None]
  - Constipation [None]
  - Intestinal obstruction [None]

NARRATIVE: CASE EVENT DATE: 20231212
